FAERS Safety Report 8861755 (Version 1)
Quarter: 2012Q4

REPORT INFORMATION
  Report Type: 
  Country: US (occurrence: US)
  Receive Date: 20121025
  Receipt Date: 20121025
  Transmission Date: 20130627
  Serious: No
  Sender: FDA-Public Use
  Company Number: US-AMGEN-USASP2012020854

PATIENT
  Age: 59 Year
  Sex: Female
  Weight: 62.59 kg

DRUGS (12)
  1. ENBREL [Suspect]
     Indication: PRODUCT USED FOR UNKNOWN INDICATION
     Dosage: 50 mg, qwk
     Route: 058
  2. EFFEXOR [Concomitant]
     Dosage: 25 mg, UNK
  3. PLAQUENIL                          /00072602/ [Concomitant]
     Dosage: 200 mg, UNK
  4. METHOTREXATE [Concomitant]
     Dosage: 2.5 mg, UNK
  5. LOVASTATIN [Concomitant]
     Dosage: 10 mg, UNK
  6. DICLOFENAC [Concomitant]
     Dosage: 100 mg, UNK
  7. FOLIC ACID [Concomitant]
     Dosage: 1 mg, UNK
  8. GABAPENTIN [Concomitant]
     Dosage: 100 mg, UNK
  9. AMITRIPTYLIN [Concomitant]
     Dosage: 10 mg, UNK
  10. LORCET                             /00607101/ [Concomitant]
     Dosage: UNK
  11. OXYCONTIN [Concomitant]
     Dosage: 40 mg, UNK
  12. DEXILANT [Concomitant]
     Dosage: 30 mg, UNK

REACTIONS (3)
  - Influenza [Unknown]
  - Wound infection [Unknown]
  - Stomatitis [Unknown]
